FAERS Safety Report 4512703-9 (Version None)
Quarter: 2004Q4

REPORT INFORMATION
  Report Type: 
  Country: None (occurrence: None)
  Receive Date: 20041012
  Receipt Date: 20040803
  Transmission Date: 20050328
  Serious: No
  Sender: FDA-Public Use
  Company Number: A03200402591

PATIENT
  Age: 60 Year
  Sex: Male

DRUGS (8)
  1. UROXATRAL [Suspect]
     Indication: BENIGN PROSTATIC HYPERPLASIA
     Dosage: 10 MG QD - ORAL
     Route: 048
     Dates: start: 20040722, end: 20040801
  2. QUINAPRIL HDYROCHLORIDE [Concomitant]
  3. PIOGLITAZONE HCL [Concomitant]
  4. GLIMEPIRIDE [Concomitant]
  5. METFORMIN HCL [Concomitant]
  6. INSULIN [Concomitant]
  7. HYDROCHLOROTHIAZIDE [Concomitant]
  8. GABAPENTIN [Concomitant]

REACTIONS (1)
  - BLOOD GLUCOSE INCREASED [None]
